FAERS Safety Report 8156192-4 (Version None)
Quarter: 2012Q1

REPORT INFORMATION
  Report Type: 
  Country: None (occurrence: None)
  Receive Date: 20120222
  Receipt Date: 20120208
  Transmission Date: 20120608
  Serious: Yes (Other)
  Sender: FDA-Public Use
  Company Number: GR-MYLANLABS-2012S1003073

PATIENT
  Age: 46 Year
  Sex: Female
  Weight: 70 kg

DRUGS (14)
  1. ATROPINE [Concomitant]
     Indication: NEUROMUSCULAR BLOCKADE REVERSAL
     Route: 065
  2. RANITIDINE [Concomitant]
     Route: 065
  3. FENTANYL-100 [Suspect]
     Route: 065
  4. TRAMADOL HCL [Suspect]
     Indication: PROCEDURAL PAIN
     Route: 042
  5. MIDAZOLAM [Concomitant]
     Route: 042
  6. METOCLOPRAMIDE [Suspect]
     Route: 065
  7. SEVOFLURANE [Concomitant]
     Indication: MAINTENANCE OF ANAESTHESIA
     Dosage: 1.2 MAC
     Route: 065
  8. ROCURONIUM BROMIDE [Concomitant]
     Indication: NEUROMUSCULAR BLOCKADE
     Route: 065
  9. ACETAMINOPHEN [Concomitant]
     Dosage: 1G
     Route: 065
  10. NEOSTIGMINE [Concomitant]
     Indication: NEUROMUSCULAR BLOCKADE REVERSAL
     Route: 065
  11. SUCCINYLCHOLINE CHLORIDE [Concomitant]
     Indication: NEUROMUSCULAR BLOCKADE
     Route: 065
  12. FENTANYL-100 [Suspect]
     Indication: INDUCTION OF ANAESTHESIA
     Dosage: 100 MICROG INITIALLY FOR ANAESTHESIA INDUCTION
     Route: 065
  13. PROPOFOL [Concomitant]
     Indication: INDUCTION OF ANAESTHESIA
     Route: 065
  14. PARECOXIB SODIUM [Concomitant]
     Dosage: 40MG
     Route: 065

REACTIONS (3)
  - MYDRIASIS [None]
  - APNOEA [None]
  - DEPRESSED LEVEL OF CONSCIOUSNESS [None]
